FAERS Safety Report 9613082 (Version 1)
Quarter: 2013Q4

REPORT INFORMATION
  Report Type: Report from Study
  Country: US (occurrence: US)
  Receive Date: 20131010
  Receipt Date: 20131010
  Transmission Date: 20140711
  Serious: Yes (Other)
  Sender: FDA-Public Use
  Company Number: US-ROCHE-1282986

PATIENT
  Sex: 0

DRUGS (4)
  1. RANIBIZUMAB [Suspect]
     Indication: DIABETIC RETINAL OEDEMA
     Route: 050
  2. BEVACIZUMAB [Suspect]
     Indication: DIABETIC RETINAL OEDEMA
     Route: 050
  3. BEVACIZUMAB [Suspect]
     Indication: OFF LABEL USE
  4. TRIAMCINOLONE [Suspect]
     Indication: DIABETIC RETINAL OEDEMA
     Route: 050

REACTIONS (5)
  - Acute myocardial infarction [Unknown]
  - Cerebrovascular accident [Unknown]
  - Endophthalmitis [Unknown]
  - Vitreous haemorrhage [Unknown]
  - Retinal detachment [Unknown]
